FAERS Safety Report 18108164 (Version 3)
Quarter: 2020Q3

REPORT INFORMATION
  Report Type: Spontaneous
  Country: JP (occurrence: JP)
  Receive Date: 20200804
  Receipt Date: 20200831
  Transmission Date: 20201103
  Serious: Yes (Other)
  Sender: FDA-Public Use
  Company Number: JP-BAYER-2020-157521

PATIENT
  Age: 14 Year
  Sex: Female

DRUGS (4)
  1. CLARITIN [Suspect]
     Active Substance: LORATADINE
     Indication: DERMATITIS ATOPIC
     Dosage: 10 MG, QD
     Route: 048
     Dates: start: 20180809, end: 20190422
  2. PA [CAFFEINE;PARACETAMOL;PROMETHAZINE METHYLENE DISALICYLATE;SALIC [Suspect]
     Active Substance: ACETAMINOPHEN\CAFFEINE\PROMETHAZINE\SALICYLAMIDE
     Indication: NASOPHARYNGITIS
     Dosage: 1 DF, BID
     Route: 048
     Dates: start: 20181106, end: 20181112
  3. CARBOCISTEINE [Concomitant]
     Active Substance: CARBOCYSTEINE
     Indication: NASOPHARYNGITIS
  4. CLARITIN [Suspect]
     Active Substance: LORATADINE
     Indication: DERMATITIS ATOPIC
     Dosage: 10 MG, PRN
     Route: 048
     Dates: start: 20200222, end: 20200520

REACTIONS (4)
  - Alopecia totalis [Not Recovered/Not Resolved]
  - Inappropriate schedule of product administration [None]
  - Nasopharyngitis [None]
  - Herpes zoster [None]

NARRATIVE: CASE EVENT DATE: 201903
